FAERS Safety Report 13733824 (Version 1)
Quarter: 2017Q3

REPORT INFORMATION
  Report Type: Report from Study
  Country: US (occurrence: US)
  Receive Date: 20170707
  Receipt Date: 20170707
  Transmission Date: 20171127
  Serious: Yes (Hospitalization)
  Sender: FDA-Public Use
  Company Number: US-VIFOR (INTERNATIONAL) INC.-VIT-2017-07190

PATIENT
  Sex: Male

DRUGS (10)
  1. VELTASSA [Suspect]
     Active Substance: PATIROMER
     Indication: HYPERKALAEMIA
     Route: 048
     Dates: start: 20170503
  2. COQ10/VIT E [Concomitant]
  3. ACETYLSALICYLIC ACID [Concomitant]
     Active Substance: ASPIRIN
  4. ALLEGRA-D [Concomitant]
     Active Substance: FEXOFENADINE\PSEUDOEPHEDRINE
  5. SPIRONOLACTONE. [Concomitant]
     Active Substance: SPIRONOLACTONE
  6. FISH OIL [Concomitant]
     Active Substance: FISH OIL
  7. WARFARIN [Concomitant]
     Active Substance: WARFARIN
  8. MAGNESIUM [Concomitant]
     Active Substance: MAGNESIUM
  9. COREG [Concomitant]
     Active Substance: CARVEDILOL
  10. LASIX [Concomitant]
     Active Substance: FUROSEMIDE

REACTIONS (1)
  - Hospitalisation [Not Recovered/Not Resolved]

NARRATIVE: CASE EVENT DATE: 2017
